FAERS Safety Report 5089606-7 (Version None)
Quarter: 2006Q3

REPORT INFORMATION
  Report Type: 
  Country: None (occurrence: None)
  Receive Date: 20060822
  Receipt Date: 20060810
  Transmission Date: 20061208
  Serious: Yes (Death)
  Sender: FDA-Public Use
  Company Number: 2006BH012265

PATIENT
  Age: 74 Year
  Sex: Female
  Weight: 49.8957 kg

DRUGS (1)
  1. DIANEAL [Suspect]
     Indication: DIALYSIS
     Dosage: IP
     Dates: end: 20060617

REACTIONS (9)
  - CARDIAC FAILURE [None]
  - CEREBROVASCULAR ACCIDENT [None]
  - CONVULSION [None]
  - DIALYSIS DEVICE COMPLICATION [None]
  - FAILURE TO THRIVE [None]
  - HAEMORRHAGE INTRACRANIAL [None]
  - MALAISE [None]
  - PERITONITIS [None]
  - PSEUDOMONAS INFECTION [None]
